FAERS Safety Report 5216438-9 (Version None)
Quarter: 2007Q1

REPORT INFORMATION
  Report Type: 
  Country: None (occurrence: None)
  Receive Date: 20070118
  Receipt Date: 20070109
  Transmission Date: 20070707
  Serious: Yes (Hospitalization)
  Sender: FDA-Public Use
  Company Number: 2007-00095

PATIENT
  Age: 69 Year
  Sex: Female
  Weight: 70.3 kg

DRUGS (4)
  1. PROPAFENONE HYDROCHLORIDE [Suspect]
     Indication: ATRIAL FIBRILLATION
     Dosage: 150 MG, TID, ORAL
     Route: 048
     Dates: start: 20061101
  2. COUMADIN [Concomitant]
  3. MAXZIDE [Concomitant]
  4. COZAAR [Concomitant]

REACTIONS (16)
  - ANXIETY [None]
  - AORTIC VALVE DISEASE [None]
  - APHASIA [None]
  - ATRIAL FIBRILLATION [None]
  - BRAIN SCAN ABNORMAL [None]
  - CENTRAL NERVOUS SYSTEM STIMULATION [None]
  - DRUG DOSE OMISSION [None]
  - DYSGEUSIA [None]
  - FEELING ABNORMAL [None]
  - HEADACHE [None]
  - HYPERTENSION [None]
  - INCREASED APPETITE [None]
  - INSOMNIA [None]
  - NAUSEA [None]
  - PALPITATIONS [None]
  - TRANSIENT ISCHAEMIC ATTACK [None]
